FAERS Safety Report 14316598 (Version 4)
Quarter: 2020Q1

REPORT INFORMATION
  Report Type: Spontaneous
  Country: FR (occurrence: FR)
  Receive Date: 20171222
  Receipt Date: 20200225
  Transmission Date: 20200409
  Serious: Yes (Other)
  Sender: FDA-Public Use
  Company Number: FR-MACLEODS PHARMACEUTICALS US LTD-MAC2017007071

PATIENT

DRUGS (2)
  1. OLMESARTAN [Suspect]
     Active Substance: OLMESARTAN
     Indication: BLOOD PRESSURE MANAGEMENT
     Dosage: 40 MG, QD TABLET
     Route: 065
     Dates: start: 2014
  2. AMLODIPINE [Suspect]
     Active Substance: AMLODIPINE BESYLATE
     Indication: BLOOD PRESSURE MANAGEMENT
     Dosage: 5 MG, QD CAPSULE, HARD
     Route: 065
     Dates: start: 2014

REACTIONS (4)
  - Autoimmune disorder [Recovered/Resolved]
  - Chronic hepatitis [Recovering/Resolving]
  - Drug-induced liver injury [Recovering/Resolving]
  - Hepatic fibrosis [Recovering/Resolving]
